FAERS Safety Report 16502223 (Version 1)
Quarter: 2019Q3

REPORT INFORMATION
  Report Type: Spontaneous
  Country: US (occurrence: US)
  Receive Date: 20190701
  Receipt Date: 20190701
  Transmission Date: 20191004
  Serious: No
  Sender: FDA-Public Use
  Company Number: US-PFIZER INC-2019274703

PATIENT
  Age: 39 Year
  Sex: Female

DRUGS (7)
  1. IBRANCE [Suspect]
     Active Substance: PALBOCICLIB
     Indication: BREAST CANCER METASTATIC
     Dosage: UNK
     Dates: start: 201706, end: 201803
  2. XGEVA [Suspect]
     Active Substance: DENOSUMAB
     Dosage: UNK
  3. FASLODEX [Suspect]
     Active Substance: FULVESTRANT
     Dosage: UNK
  4. LUPRON [Suspect]
     Active Substance: LEUPROLIDE ACETATE
     Dosage: UNK
  5. IBRANCE [Suspect]
     Active Substance: PALBOCICLIB
     Dosage: UNK
     Dates: start: 201901
  6. LETROZOLE. [Suspect]
     Active Substance: LETROZOLE
     Dosage: UNK
  7. ZOLADEX [Suspect]
     Active Substance: GOSERELIN ACETATE
     Dosage: UNK

REACTIONS (8)
  - Rib fracture [Unknown]
  - Menopause [Unknown]
  - Arthropathy [Unknown]
  - Epistaxis [Unknown]
  - Dry skin [Unknown]
  - Gait disturbance [Unknown]
  - Hormone level abnormal [Unknown]
  - Alopecia [Unknown]
